FAERS Safety Report 9139672 (Version 1)
Quarter: 2013Q1

REPORT INFORMATION
  Report Type: Spontaneous
  Country: US (occurrence: US)
  Receive Date: 20130305
  Receipt Date: 20130305
  Transmission Date: 20140127
  Serious: No
  Sender: FDA-Public Use
  Company Number: US-PFIZER INC-2013073565

PATIENT
  Age: 57 Year
  Sex: Female

DRUGS (8)
  1. ZOLOFT [Suspect]
     Dosage: UNK
  2. CELEXA [Suspect]
     Dosage: UNK
  3. PROZAC [Suspect]
     Dosage: UNK
  4. LEXAPRO [Suspect]
     Dosage: UNK
  5. PAXIL [Suspect]
     Dosage: UNK
  6. TRAZODONE [Suspect]
     Dosage: UNK
  7. WELLBUTRIN [Suspect]
     Dosage: UNK
  8. CYMBALTA [Suspect]
     Dosage: UNK

REACTIONS (2)
  - Psychiatric symptom [Not Recovered/Not Resolved]
  - Memory impairment [Not Recovered/Not Resolved]
